FAERS Safety Report 6256609-6 (Version None)
Quarter: 2009Q3

REPORT INFORMATION
  Report Type: 
  Country: None (occurrence: None)
  Receive Date: 20090706
  Receipt Date: 20090625
  Transmission Date: 20100115
  Serious: Yes (Hospitalization, Other)
  Sender: FDA-Public Use
  Company Number: ES-BAYER-200924024GPV

PATIENT
  Age: 59 Year
  Sex: Female

DRUGS (1)
  1. ULTRAVIST 300 MG I/ML SOLUCION INYECTABLE, 1 FRASCO DE 100 ML [Suspect]
     Indication: COMPUTERISED TOMOGRAM
     Route: 042
     Dates: start: 20080922, end: 20080922

REACTIONS (8)
  - ANAL SPHINCTER ATONY [None]
  - BLADDER SPHINCTER ATONY [None]
  - DYSPNOEA [None]
  - ERYTHEMA [None]
  - LIP OEDEMA [None]
  - RESPIRATORY ARREST [None]
  - TONGUE OEDEMA [None]
  - VOMITING [None]
